FAERS Safety Report 8543149-4 (Version None)
Quarter: 2012Q3

REPORT INFORMATION
  Report Type: 
  Country: None (occurrence: None)
  Receive Date: 20120727
  Receipt Date: 20120717
  Transmission Date: 20120928
  Serious: Yes (Death, Other)
  Sender: FDA-Public Use
  Company Number: KR-CELGENEUS-286-20785-12071854

PATIENT

DRUGS (8)
  1. CYCLOPHOSPHAMIDE [Concomitant]
     Indication: MULTIPLE MYELOMA
     Dosage: 150 MILLIGRAM/SQ. METER
     Route: 048
  2. ASPIRIN [Concomitant]
     Indication: THROMBOSIS PROPHYLAXIS
     Dosage: 100 MILLIGRAM
     Route: 048
  3. MELPHALAN HYDROCHLORIDE [Concomitant]
     Indication: MULTIPLE MYELOMA
     Dosage: 8 MILLIGRAM/SQ. METER
     Route: 048
  4. THALIDOMIDE [Suspect]
     Indication: MULTIPLE MYELOMA
     Dosage: 50 MILLIGRAM
     Route: 048
  5. PLATELETS [Concomitant]
     Dosage: TRANSFUSIONS
     Route: 065
  6. DEXAMETHASONE [Concomitant]
     Indication: MULTIPLE MYELOMA
     Dosage: 20 MILLIGRAM/SQ. METER
     Route: 048
  7. RED BLOOD CELLS [Concomitant]
     Dosage: TRANSFUSIONS
     Route: 065
  8. PREDNISONE [Concomitant]
     Indication: MULTIPLE MYELOMA
     Dosage: 80 MILLIGRAM/SQ. METER
     Route: 065

REACTIONS (18)
  - NEUTROPENIC COLITIS [None]
  - URINARY TRACT INFECTION [None]
  - NEUTROPENIC INFECTION [None]
  - THROMBOCYTOPENIA [None]
  - PNEUMOCYSTIS JIROVECI PNEUMONIA [None]
  - SEPSIS [None]
  - NEUROPATHY PERIPHERAL [None]
  - GASTROINTESTINAL DISORDER [None]
  - HERPES ZOSTER [None]
  - INFECTION [None]
  - FUNGAL INFECTION [None]
  - NEUTROPENIA [None]
  - ANAEMIA [None]
  - EMBOLISM [None]
  - SEPTIC SHOCK [None]
  - ACUTE RESPIRATORY DISTRESS SYNDROME [None]
  - TOXICITY TO VARIOUS AGENTS [None]
  - PNEUMONIA BACTERIAL [None]
